FAERS Safety Report 6779652-7 (Version None)
Quarter: 2010Q2

REPORT INFORMATION
  Report Type: 
  Country: None (occurrence: None)
  Receive Date: 20100618
  Receipt Date: 20100610
  Transmission Date: 20101027
  Serious: Yes (Hospitalization)
  Sender: FDA-Public Use
  Company Number: B0661044A

PATIENT
  Sex: Male

DRUGS (2)
  1. HYCAMTIN [Suspect]
     Indication: NEOPLASM
     Dosage: 1312MG PER DAY
     Route: 042
     Dates: start: 20100517, end: 20100521
  2. TEMODAL [Suspect]
     Indication: NEOPLASM
     Dosage: 260MG PER DAY
     Route: 048
     Dates: start: 20100517, end: 20100521

REACTIONS (1)
  - FEBRILE BONE MARROW APLASIA [None]
